FAERS Safety Report 7725805-0 (Version None)
Quarter: 2011Q3

REPORT INFORMATION
  Report Type: 
  Country: None (occurrence: None)
  Receive Date: 20110902
  Receipt Date: 20110826
  Transmission Date: 20111222
  Serious: Yes (Death)
  Sender: FDA-Public Use
  Company Number: DK-AMGEN-DNKCT2011041559

PATIENT
  Age: 78 Year
  Sex: Female
  Weight: 59 kg

DRUGS (3)
  1. ACTEMRA [Suspect]
     Indication: RHEUMATOID ARTHRITIS
     Dosage: Q MO(MG/KG);LAST4 INFUSIONS-28JAN2009(530),10SEP2009(500),25FEB2010(560)22APR2010(550),07OCT2010(560
     Dates: start: 20090127, end: 20101221
  2. ETANERCEPT [Suspect]
     Indication: RHEUMATOID ARTHRITIS
     Dosage: 50 MG, QWK
     Dates: start: 20080709, end: 20081013
  3. REMICADE [Suspect]
     Indication: RHEUMATOID ARTHRITIS
     Dosage: 180 MG WEEK 0,2,6+8
     Dates: start: 20081014, end: 20081127

REACTIONS (1)
  - LUNG NEOPLASM MALIGNANT [None]
